FAERS Safety Report 6690710-8 (Version None)
Quarter: 2010Q2

REPORT INFORMATION
  Report Type: 
  Country: None (occurrence: None)
  Receive Date: 20100420
  Receipt Date: 20100420
  Transmission Date: 20101027
  Serious: Yes (Hospitalization)
  Sender: FDA-Public Use
  Company Number: None

PATIENT
  Age: 72 Year
  Sex: Male

DRUGS (1)
  1. WARFARIN SODIUM [Suspect]
     Indication: PULMONARY EMBOLISM
     Dosage: 10MG MG OTHER PO
     Route: 048
     Dates: start: 20100216, end: 20100414

REACTIONS (2)
  - COAGULOPATHY [None]
  - UPPER GASTROINTESTINAL HAEMORRHAGE [None]
